FAERS Safety Report 8330133-9 (Version None)
Quarter: 2012Q1

REPORT INFORMATION
  Report Type: 
  Country: None (occurrence: None)
  Receive Date: 20120315
  Receipt Date: 20110503
  Transmission Date: 20120608
  Serious: No
  Sender: FDA-Public Use
  Company Number: PHHY2011US31994

PATIENT
  Age: 37 Year
  Sex: Female
  Weight: 86.2 kg

DRUGS (3)
  1. PRENATAL VITAMINS (ASCORBIC ACID, BIOTIN, MINERALS NOS, NICOTINIC ACID [Concomitant]
  2. VITAMIN D [Concomitant]
  3. GILENYA [Suspect]
     Dosage: 0.5 MG, QD
     Dates: start: 20110101

REACTIONS (3)
  - EYELID OEDEMA [None]
  - CONJUNCTIVITIS [None]
  - OCULAR HYPERAEMIA [None]
